FAERS Safety Report 6622278-6 (Version None)
Quarter: 2010Q1

REPORT INFORMATION
  Report Type: 
  Country: None (occurrence: None)
  Receive Date: 20100305
  Receipt Date: 20100301
  Transmission Date: 20100710
  Serious: Yes (Other)
  Sender: FDA-Public Use
  Company Number: 10US001268

PATIENT
  Age: 44 Year
  Sex: Male

DRUGS (3)
  1. PAROXETINE HCL [Suspect]
     Indication: DEPRESSION
  2. KAVA-KAVA RHIZOMA (PIPER METHYSTICUM RHIZOME) UNKNOWN [Suspect]
     Indication: DRUG USE FOR UNKNOWN INDICATION
  3. VALERIAN ROOT (VALERIANA OFFICINALIS ROOT) UNKNOWN [Suspect]
     Indication: DRUG USE FOR UNKNOWN INDICATION

REACTIONS (5)
  - APHASIA [None]
  - CONFUSIONAL STATE [None]
  - DRUG INTERACTION [None]
  - LETHARGY [None]
  - MUSCULAR WEAKNESS [None]
